FAERS Safety Report 23780969 (Version 1)
Quarter: 2024Q2

REPORT INFORMATION
  Report Type: Spontaneous
  Country: US (occurrence: US)
  Receive Date: 20240425
  Receipt Date: 20240425
  Transmission Date: 20240716
  Serious: No
  Sender: FDA-Public Use
  Company Number: US-TAKEDA-2024TUS037864

PATIENT
  Sex: Female
  Weight: 49 kg

DRUGS (2)
  1. MOTEGRITY [Suspect]
     Active Substance: PRUCALOPRIDE SUCCINATE
     Indication: Product used for unknown indication
     Dosage: UNK
     Route: 065
  2. MILK OF MAGNESIA [Concomitant]
     Active Substance: MAGNESIUM HYDROXIDE
     Dosage: 50 MILLILITER
     Route: 065

REACTIONS (7)
  - Spinal pain [Unknown]
  - Depression [Unknown]
  - Gastrointestinal pain [Unknown]
  - Weight increased [Unknown]
  - Frequent bowel movements [Unknown]
  - Fatigue [Unknown]
  - Headache [Unknown]
